FAERS Safety Report 7605960-3 (Version None)
Quarter: 2011Q3

REPORT INFORMATION
  Report Type: 
  Country: None (occurrence: None)
  Receive Date: 20110713
  Receipt Date: 20110629
  Transmission Date: 20111222
  Serious: Yes (Hospitalization, Other)
  Sender: FDA-Public Use
  Company Number: PHHY2011BR26373

PATIENT
  Sex: Female

DRUGS (2)
  1. DIOVAN HCT [Suspect]
     Dosage: 1 DF, DAILY
     Route: 048
     Dates: start: 20110401
  2. DIOVAN HCT [Suspect]
     Indication: HYPERTENSION
     Dosage: 1 DF, DAILY (160/12.5 MG)
     Route: 048
     Dates: start: 20110217

REACTIONS (4)
  - UTERINE LEIOMYOMA [None]
  - RASH [None]
  - ERYTHEMA [None]
  - PRURITUS [None]
